FAERS Safety Report 13156952 (Version 3)
Quarter: 2017Q1

REPORT INFORMATION
  Report Type: Report from Study
  Country: GB (occurrence: GB)
  Receive Date: 20170127
  Receipt Date: 20170208
  Transmission Date: 20170428
  Serious: Yes (Hospitalization, Disabling)
  Sender: FDA-Public Use
  Company Number: GB-ROCHE-1883511

PATIENT
  Age: 80 Year
  Sex: Female
  Weight: 102.4 kg

DRUGS (17)
  1. RITUXIMAB [Suspect]
     Active Substance: RITUXIMAB
     Indication: B-CELL LYMPHOMA
     Route: 058
     Dates: start: 20150422, end: 20161101
  2. PARACETAMOL [Concomitant]
     Active Substance: ACETAMINOPHEN
     Route: 048
     Dates: start: 20170124
  3. VITAMIN K [Concomitant]
     Active Substance: PHYTONADIONE
     Route: 048
     Dates: start: 20170124, end: 20170124
  4. GENTAMICIN. [Concomitant]
     Active Substance: GENTAMICIN
     Route: 042
     Dates: start: 20170124, end: 20170124
  5. AMOXICILLINE [Concomitant]
     Active Substance: AMOXICILLIN
     Route: 048
     Dates: start: 20161207, end: 20161211
  6. SALBUTAMOL [Concomitant]
     Active Substance: ALBUTEROL
     Route: 065
     Dates: start: 20170124
  7. CLARITHROMYCIN. [Concomitant]
     Active Substance: CLARITHROMYCIN
     Route: 048
     Dates: start: 20170131
  8. CO-DYDRAMOL [Concomitant]
     Active Substance: ACETAMINOPHEN\DIHYDROCODEINE
     Indication: UPPER RESPIRATORY TRACT INFECTION
     Dosage: 80/500MG
     Route: 048
     Dates: start: 20170117, end: 20170119
  9. CODEINE LINCTUS [Concomitant]
     Active Substance: CHLOROFORM\CODEINE PHOSPHATE\DRIMIA MARITIMA BULB
     Indication: STOMATITIS
     Dosage: PRN (AS NEEDED)
     Route: 048
     Dates: start: 20170117
  10. BENZYLPENICILLIN [Concomitant]
     Active Substance: PENICILLIN G
     Route: 042
     Dates: start: 20170124
  11. PREDNISOLONE. [Concomitant]
     Active Substance: PREDNISOLONE
     Route: 048
     Dates: start: 20170124, end: 20170124
  12. AMOXICILLIN. [Concomitant]
     Active Substance: AMOXICILLIN
     Route: 048
     Dates: start: 20170131
  13. RITUXIMAB [Suspect]
     Active Substance: RITUXIMAB
     Indication: B-CELL LYMPHOMA
     Dosage: CYCLE 1 DAY 1
     Route: 042
     Dates: start: 20150325, end: 20150325
  14. CHLORPHENIRAMINE. [Concomitant]
     Active Substance: CHLORPHENIRAMINE
  15. DOXYCYCLINE. [Concomitant]
     Active Substance: DOXYCYCLINE
     Indication: UPPER RESPIRATORY TRACT INFECTION
     Route: 048
     Dates: start: 20161212, end: 20161216
  16. TAZOCIN [Concomitant]
     Active Substance: PIPERACILLIN SODIUM\TAZOBACTAM SODIUM
     Route: 042
  17. WARFARIN [Concomitant]
     Active Substance: WARFARIN
     Route: 048
     Dates: start: 20170131

REACTIONS (3)
  - Stomatitis [Recovered/Resolved with Sequelae]
  - Pneumonia [Recovered/Resolved with Sequelae]
  - Bronchiectasis [Recovered/Resolved with Sequelae]

NARRATIVE: CASE EVENT DATE: 20170117
